FAERS Safety Report 7279285-2 (Version None)
Quarter: 2011Q1

REPORT INFORMATION
  Report Type: 
  Country: None (occurrence: None)
  Receive Date: 20110207
  Receipt Date: 20110128
  Transmission Date: 20110831
  Serious: Yes (Death)
  Sender: FDA-Public Use
  Company Number: US-GENENTECH-313197

PATIENT
  Age: 65 Year
  Sex: Female
  Weight: 53.3 kg

DRUGS (6)
  1. RITUXIMAB [Suspect]
     Indication: CHRONIC LYMPHOCYTIC LEUKAEMIA
     Dosage: 50 MG/M2, UNK
     Route: 042
     Dates: start: 20101101
  2. FLUDARABINE PHOSPHATE [Suspect]
     Indication: CHRONIC LYMPHOCYTIC LEUKAEMIA
     Dosage: 25 MG/M2, UNK
     Route: 042
     Dates: start: 20101101
  3. RITUXIMAB [Suspect]
     Dosage: 375 MG/M2, UNK
     Route: 042
  4. LENALIDOMIDE [Suspect]
     Dosage: FREQUENCY: EVERY DAY ON DAYS 1-21 DAYS CYCLE 2
     Route: 048
  5. LENALIDOMIDE [Suspect]
     Indication: CHRONIC LYMPHOCYTIC LEUKAEMIA
     Dosage: UNK
     Route: 048
     Dates: start: 20101101
  6. RITUXIMAB [Suspect]
     Dosage: 325 MG/M2, UNK
     Route: 042

REACTIONS (2)
  - PYREXIA [None]
  - HAEMOLYSIS [None]
